FAERS Safety Report 20894338 (Version 1)
Quarter: 2022Q2

REPORT INFORMATION
  Report Type: Spontaneous
  Country: IT (occurrence: IT)
  Receive Date: 20220531
  Receipt Date: 20220531
  Transmission Date: 20220721
  Serious: Yes (Other)
  Sender: FDA-Public Use
  Company Number: IT-ORGANON-O2205ITA002313

PATIENT
  Age: 12 Year
  Sex: Male
  Weight: 59.3 kg

DRUGS (4)
  1. EBASTINE [Suspect]
     Active Substance: EBASTINE
     Dosage: 1 IN THE EVENING
     Route: 048
     Dates: start: 20220521, end: 202205
  2. CETIRIZINE [Concomitant]
     Active Substance: CETIRIZINE HYDROCHLORIDE
     Indication: Rhinitis allergic
     Dosage: 1 TABLET IN THE EVENING AND 1 TABLET IN THE NEXT DAY MORNING
     Route: 048
     Dates: start: 20220519, end: 20220520
  3. CETIRIZINE [Concomitant]
     Active Substance: CETIRIZINE HYDROCHLORIDE
     Indication: Dizziness
  4. CETIRIZINE [Concomitant]
     Active Substance: CETIRIZINE HYDROCHLORIDE
     Indication: Malaise

REACTIONS (2)
  - Hallucination, visual [Unknown]
  - Somnolence [Unknown]

NARRATIVE: CASE EVENT DATE: 20220522
